FAERS Safety Report 16674782 (Version 1)
Quarter: 2019Q3

REPORT INFORMATION
  Report Type: Spontaneous
  Country: US (occurrence: US)
  Receive Date: 20190806
  Receipt Date: 20190806
  Transmission Date: 20191004
  Serious: No
  Sender: FDA-Public Use
  Company Number: US-SA-2019SA204543

PATIENT

DRUGS (1)
  1. UNISOM SLEEPTABS [Suspect]
     Active Substance: DOXYLAMINE SUCCINATE

REACTIONS (3)
  - Insomnia [Not Recovered/Not Resolved]
  - Somnolence [Unknown]
  - Drug ineffective [Not Recovered/Not Resolved]
